FAERS Safety Report 18587038 (Version 2)
Quarter: 2020Q4

REPORT INFORMATION
  Report Type: Spontaneous
  Country: US (occurrence: US)
  Receive Date: 20201207
  Receipt Date: 20201229
  Transmission Date: 20210114
  Serious: Yes (Hospitalization, Other)
  Sender: FDA-Public Use
  Company Number: US-INTRA-CELLULAR THERAPIES, INC.-2020ICT00258

PATIENT
  Age: 36 Year
  Sex: Female
  Weight: 136.96 kg

DRUGS (8)
  1. CAPLYTA [Suspect]
     Active Substance: LUMATEPERONE
     Indication: SCHIZOAFFECTIVE DISORDER BIPOLAR TYPE
     Dosage: 42 MG, 1X/DAY
     Route: 048
     Dates: start: 20200508, end: 20200524
  2. PRISTIQ EXTENDED-RELEASE [Concomitant]
     Active Substance: DESVENLAFAXINE SUCCINATE
  3. CAPLYTA [Suspect]
     Active Substance: LUMATEPERONE
     Indication: HALLUCINATION
  4. REXULTI [Concomitant]
     Active Substance: BREXPIPRAZOLE
     Dosage: UNK
  5. CAPLYTA [Suspect]
     Active Substance: LUMATEPERONE
     Indication: PARANOIA
  6. WELLBUTRIN XL [Concomitant]
     Active Substance: BUPROPION HYDROCHLORIDE
  7. CAPLYTA [Suspect]
     Active Substance: LUMATEPERONE
     Indication: PSYCHOTIC DISORDER
     Dosage: 42 MG, 1X/DAY WITH FOOD
     Route: 048
     Dates: start: 2020, end: 20201027
  8. LAMICTAL [Concomitant]
     Active Substance: LAMOTRIGINE

REACTIONS (8)
  - Schizophrenia [Recovered/Resolved]
  - Fatigue [Unknown]
  - Confusional state [Unknown]
  - Feeling drunk [Recovering/Resolving]
  - Psychotic disorder [Recovering/Resolving]
  - Sedation [Unknown]
  - Drug ineffective for unapproved indication [Recovered/Resolved]
  - Dissociation [Recovered/Resolved]

NARRATIVE: CASE EVENT DATE: 2020
